APPROVED DRUG PRODUCT: NISOLDIPINE
Active Ingredient: NISOLDIPINE
Strength: 8.5MG
Dosage Form/Route: TABLET, EXTENDED RELEASE;ORAL
Application: A216606 | Product #001
Applicant: AMTA LABS LTD
Approved: Apr 10, 2023 | RLD: No | RS: No | Type: DISCN